FAERS Safety Report 22875550 (Version 2)
Quarter: 2024Q3

REPORT INFORMATION
  Report Type: Spontaneous
  Country: BR (occurrence: BR)
  Receive Date: 20230829
  Receipt Date: 20240810
  Transmission Date: 20241017
  Serious: Yes (Hospitalization, Other)
  Sender: CELLTRION
  Company Number: BR-CELLTRION INC.-2023BR001093

PATIENT

DRUGS (4)
  1. INFLIXIMAB [Suspect]
     Active Substance: INFLIXIMAB
     Indication: Colitis ulcerative
     Dosage: 3 AMPOULES OF REMSIMA EVERY MONTH
     Route: 042
     Dates: start: 20221020
  2. INFLIXIMAB [Suspect]
     Active Substance: INFLIXIMAB
     Dosage: 2 OR 3 AMPOULES
     Route: 042
  3. AZATHIOPRINE [Concomitant]
     Active Substance: AZATHIOPRINE
     Indication: Colitis ulcerative
     Dosage: 2 PILLS A DAY
     Route: 048
     Dates: start: 2019
  4. DIPYRONE [Concomitant]
     Active Substance: DIPYRONE
     Indication: Pain

REACTIONS (8)
  - Pneumonia [Not Recovered/Not Resolved]
  - Haemorrhage [Unknown]
  - Feeling abnormal [Unknown]
  - Depressed mood [Unknown]
  - Influenza [Recovered/Resolved]
  - Gastrointestinal pain [Unknown]
  - Intentional dose omission [Unknown]
  - Intentional product use issue [Unknown]
